FAERS Safety Report 7171273-X (Version None)
Quarter: 2010Q4

REPORT INFORMATION
  Report Type: 
  Country: None (occurrence: None)
  Receive Date: 20101217
  Receipt Date: 20101207
  Transmission Date: 20110411
  Serious: Yes (Hospitalization, Other)
  Sender: FDA-Public Use
  Company Number: US-ELI_LILLY_AND_COMPANY-US201012002695

PATIENT
  Age: 80 Year
  Sex: Male

DRUGS (2)
  1. HUMALOG [Suspect]
     Indication: DIABETES MELLITUS
     Dosage: 60 U, 2/D
     Dates: start: 20050101
  2. NOVOLIN 70/30 [Concomitant]

REACTIONS (7)
  - ARTHROSCOPY [None]
  - CARDIAC PACEMAKER INSERTION [None]
  - HEART RATE DECREASED [None]
  - INFECTION [None]
  - NASOPHARYNGITIS [None]
  - PRODUCTIVE COUGH [None]
  - PULMONARY CONGESTION [None]
